FAERS Safety Report 7617615-X (Version None)
Quarter: 2011Q3

REPORT INFORMATION
  Report Type: 
  Country: None (occurrence: None)
  Receive Date: 20110718
  Receipt Date: 20110711
  Transmission Date: 20111222
  Serious: Yes (Death)
  Sender: FDA-Public Use
  Company Number: CZ-GENZYME-FLUD-1001278

PATIENT

DRUGS (4)
  1. CYCLOPHOSPHAMIDE [Suspect]
     Indication: CHRONIC LYMPHOCYTIC LEUKAEMIA
     Dosage: 150 MG/M2, QDX3, IV OR PO, REPEATED EVERY 4 WEEKS
     Route: 065
  2. FLUDARA [Suspect]
     Indication: CHRONIC LYMPHOCYTIC LEUKAEMIA
     Dosage: 12 MG/M2 IV OR 20 MG/M2 ORALLY ON DAYS 1-3, REPEATED EVERY 4 WEEKS
     Route: 065
  3. FLUDARA [Suspect]
     Dosage: 12 MG/M2 IV OR 20 MG/M2 ORALLY ON DAYS 1-3, REPEATED EVERY 4 WEEKS
     Route: 065
  4. CYCLOPHOSPHAMIDE [Suspect]
     Dosage: 150 MG/M2, QDX3, IV OR PO, REPEATED EVERY 4 WEEKS
     Route: 065

REACTIONS (1)
  - PULMONARY EMBOLISM [None]
